FAERS Safety Report 9013492 (Version 1)
Quarter: 2012Q4

REPORT INFORMATION
  Report Type: Spontaneous
  Country: GB (occurrence: None)
  Receive Date: 20121231
  Receipt Date: 20121231
  Transmission Date: 20130627
  Serious: Yes (Hospitalization, Other)
  Sender: FDA-Public Use
  Company Number: CL-460-2012

PATIENT
  Age: 6 Year
  Sex: Female

DRUGS (1)
  1. HALOPERIDOL [Suspect]
     Indication: ACCIDENTAL DRUG INTAKE BY CHILD

REACTIONS (11)
  - Vomiting [None]
  - Dystonia [None]
  - Depressed level of consciousness [None]
  - Agitation [None]
  - Pyrexia [None]
  - Heart rate increased [None]
  - Blood pressure decreased [None]
  - Hyperhidrosis [None]
  - Opisthotonus [None]
  - Clonus [None]
  - Poisoning [None]
